FAERS Safety Report 11751968 (Version 3)
Quarter: 2016Q1

REPORT INFORMATION
  Report Type: Spontaneous
  Country: JP (occurrence: JP)
  Receive Date: 20151118
  Receipt Date: 20160105
  Transmission Date: 20160525
  Serious: Yes (Other)
  Sender: FDA-Public Use
  Company Number: JP-ELI_LILLY_AND_COMPANY-JP201511003882

PATIENT
  Age: 76 Year
  Sex: Female

DRUGS (7)
  1. FELNABION [Concomitant]
     Route: 062
  2. MAGMITT [Concomitant]
     Active Substance: MAGNESIUM OXIDE
  3. CALONAL [Concomitant]
     Active Substance: ACETAMINOPHEN
     Route: 048
  4. BONOTEO [Concomitant]
     Active Substance: MINODRONIC ACID
  5. REBAMIPIDE [Concomitant]
     Active Substance: REBAMIPIDE
     Route: 048
  6. FORTEO [Suspect]
     Active Substance: TERIPARATIDE
     Indication: PRODUCT USED FOR UNKNOWN INDICATION
     Dosage: UNK
     Route: 058
  7. RIZE                               /00624801/ [Concomitant]
     Active Substance: CLOTIAZEPAM

REACTIONS (1)
  - Interstitial lung disease [Not Recovered/Not Resolved]
